FAERS Safety Report 7968808-3 (Version None)
Quarter: 2011Q4

REPORT INFORMATION
  Report Type: 
  Country: None (occurrence: None)
  Receive Date: 20111209
  Receipt Date: 20111202
  Transmission Date: 20120403
  Serious: Yes (Hospitalization)
  Sender: FDA-Public Use
  Company Number: US-US-EMD SERONO, INC.-235668K09USA

PATIENT
  Sex: Female
  Weight: 90 kg

DRUGS (1)
  1. REBIF [Suspect]
     Indication: MULTIPLE SCLEROSIS
     Route: 058
     Dates: start: 20081117

REACTIONS (7)
  - CONFUSIONAL STATE [None]
  - INJECTION SITE ERYTHEMA [None]
  - FALL [None]
  - INJECTION SITE MASS [None]
  - FIBULA FRACTURE [None]
  - MUSCULAR WEAKNESS [None]
  - TIBIA FRACTURE [None]
